FAERS Safety Report 4347027-6 (Version None)
Quarter: 2004Q2

REPORT INFORMATION
  Report Type: 
  Country: None (occurrence: None)
  Receive Date: 20040422
  Receipt Date: 20040415
  Transmission Date: 20050107
  Serious: Yes (Death)
  Sender: FDA-Public Use
  Company Number: US-JNJFOC-20040403454

PATIENT

DRUGS (1)
  1. CISAPRIDE (CISAPRIDE) UNSPECIFIED [Suspect]

REACTIONS (1)
  - INFECTION [None]
